FAERS Safety Report 9233004 (Version 3)
Quarter: 2013Q3

REPORT INFORMATION
  Report Type: Spontaneous
  Country: US (occurrence: US)
  Receive Date: 20130416
  Receipt Date: 20130816
  Transmission Date: 20140515
  Serious: Yes (Hospitalization)
  Sender: FDA-Public Use
  Company Number: US-BAYER-2013-047667

PATIENT
  Age: 32 Year
  Sex: Female
  Weight: 70.3 kg

DRUGS (19)
  1. YASMIN [Suspect]
     Indication: ACNE
     Dosage: UNK
     Dates: start: 201103, end: 201104
  2. TRIAMTERENE AND HYDROCHLOROTHIAZIDE [Concomitant]
     Dosage: UNK
     Dates: start: 20110224
  3. TRIAMTERENE AND HYDROCHLOROTHIAZIDE [Concomitant]
     Dosage: UNK
     Dates: start: 20110330
  4. TRIAMTERENE AND HYDROCHLOROTHIAZIDE [Concomitant]
     Dosage: UNK
     Dates: start: 20110418
  5. NASONEX [Concomitant]
  6. ZANTAC [Concomitant]
  7. MIRAPEX [Concomitant]
  8. HYDROXYZINE HCL [Concomitant]
     Dosage: UNK
     Dates: start: 20110304
  9. HYDROXYZINE HCL [Concomitant]
     Dosage: UNK
     Dates: start: 20110401
  10. FLAGYL [Concomitant]
  11. MYCELEX [Concomitant]
  12. METHYLPREDNISOLONE [Concomitant]
  13. EPIPEN [Concomitant]
  14. ZOFRAN [Concomitant]
     Dosage: UNK
     Dates: start: 20110208
  15. MEDROXYPROGESTERONE ACETATE [Concomitant]
  16. PERCOCET [Concomitant]
  17. LIDOCAINE HYDROCHLORIDE [Concomitant]
     Dosage: 2 %, UNK
  18. MOTRIN [Concomitant]
  19. TRAMADOL [Concomitant]

REACTIONS (3)
  - Pulmonary embolism [None]
  - Pain [None]
  - Pain [None]
